FAERS Safety Report 12336932 (Version 2)
Quarter: 2017Q4

REPORT INFORMATION
  Report Type: Spontaneous
  Country: US (occurrence: US)
  Receive Date: 20160505
  Receipt Date: 20171029
  Transmission Date: 20180320
  Serious: No
  Sender: FDA-Public Use
  Company Number: US-TEVA-657388USA

PATIENT
  Age: 48 Year
  Sex: Female

DRUGS (20)
  1. METRONIDAZOLE. [Concomitant]
     Active Substance: METRONIDAZOLE
  2. B 12 ACTIVE [Concomitant]
  3. COPAXONE [Suspect]
     Active Substance: GLATIRAMER ACETATE
     Indication: MULTIPLE SCLEROSIS
     Dosage: PFS
     Route: 058
     Dates: start: 20141010
  4. SERTRALINE [Concomitant]
     Active Substance: SERTRALINE HYDROCHLORIDE
  5. CHANTIX [Concomitant]
     Active Substance: VARENICLINE TARTRATE
  6. CIPROFLOXACIN. [Concomitant]
     Active Substance: CIPROFLOXACIN
  7. MODAFINIL. [Concomitant]
     Active Substance: MODAFINIL
  8. ZOLOFT [Concomitant]
     Active Substance: SERTRALINE HYDROCHLORIDE
  9. TOLTERODINE [Concomitant]
     Active Substance: TOLTERODINE
  10. ELIQUIS [Concomitant]
     Active Substance: APIXABAN
  11. LOPERAMIDE [Concomitant]
     Active Substance: LOPERAMIDE
  12. AMPYRA [Concomitant]
     Active Substance: DALFAMPRIDINE
  13. CYANOCOBALAM [Concomitant]
  14. BUPROPION. [Concomitant]
     Active Substance: BUPROPION
  15. AUGMENTIN [Concomitant]
     Active Substance: AMOXICILLIN\CLAVULANATE POTASSIUM
  16. OMEPRAZOLE. [Concomitant]
     Active Substance: OMEPRAZOLE
  17. ALCOHOL PREP MED [Concomitant]
     Dosage: 2 PLY
  18. TIZANIDINE. [Concomitant]
     Active Substance: TIZANIDINE
  19. VITAMIN D3 [Concomitant]
     Active Substance: CHOLECALCIFEROL
  20. VITRON C [Concomitant]
     Active Substance: ASCORBIC ACID\IRON

REACTIONS (6)
  - Weight decreased [Not Recovered/Not Resolved]
  - Hypoaesthesia [Not Recovered/Not Resolved]
  - Peroneal nerve palsy [Not Recovered/Not Resolved]
  - Balance disorder [Not Recovered/Not Resolved]
  - Fall [Unknown]
  - Injection site reaction [Not Recovered/Not Resolved]

NARRATIVE: CASE EVENT DATE: 201507
